FAERS Safety Report 9351548 (Version 1)
Quarter: 2013Q2

REPORT INFORMATION
  Report Type: Spontaneous
  Country: JP (occurrence: JP)
  Receive Date: 20130617
  Receipt Date: 20130617
  Transmission Date: 20140414
  Serious: Yes (Other)
  Sender: FDA-Public Use
  Company Number: PHHY2013JP061148

PATIENT
  Age: 44 Year
  Sex: Male

DRUGS (1)
  1. TEGRETOL [Suspect]
     Dosage: 1000 MG, DAILY
     Route: 048
     Dates: end: 20130605

REACTIONS (3)
  - Cardio-respiratory arrest [Unknown]
  - Cardiomyopathy [Unknown]
  - Drug withdrawal syndrome [Unknown]
